FAERS Safety Report 6908568-8 (Version None)
Quarter: 2010Q3

REPORT INFORMATION
  Report Type: 
  Country: None (occurrence: None)
  Receive Date: 20100805
  Receipt Date: 20100727
  Transmission Date: 20110219
  Serious: Yes (Other)
  Sender: FDA-Public Use
  Company Number: US-JNJFOC-20100708616

PATIENT
  Age: 54 Year
  Sex: Male
  Weight: 77.11 kg

DRUGS (7)
  1. IMODIUM A-D [Suspect]
     Route: 048
  2. IMODIUM A-D [Suspect]
     Indication: DIARRHOEA
     Dosage: 25-35 CAPLETS DAILY FOR APPROXIMATELY 6 MONTHS
     Route: 048
  3. ANTIHYPERTENSIVE [Concomitant]
     Indication: HYPERTENSION
     Route: 065
  4. INSULIN [Concomitant]
     Indication: DIABETES MELLITUS
     Route: 065
  5. INSULIN [Concomitant]
     Route: 065
  6. UNKNOWN MEDICATION [Concomitant]
     Route: 065
  7. NEURONTIN [Concomitant]
     Indication: NEUROPATHY PERIPHERAL
     Route: 065

REACTIONS (2)
  - OVERDOSE [None]
  - WEIGHT INCREASED [None]
